FAERS Safety Report 6252535-7 (Version None)
Quarter: 2009Q3

REPORT INFORMATION
  Report Type: 
  Country: None (occurrence: None)
  Receive Date: 20090701
  Receipt Date: 20090623
  Transmission Date: 20100115
  Serious: Yes (Hospitalization)
  Sender: FDA-Public Use
  Company Number: US-WYE-H09872309

PATIENT
  Age: 67 Year
  Sex: Female
  Weight: 66.4 kg

DRUGS (3)
  1. TORISEL [Suspect]
     Indication: ENDOMETRIAL CANCER
     Dosage: 25 MG DAYS 1,8,15, 22 (TOTAL DOSE THIS COURSE 75 MG)
     Route: 042
     Dates: start: 20081203, end: 20090114
  2. FENTANYL [Suspect]
     Dosage: DOSE NOT PROVIDED, FROM AN UNSPECIFIED DATE TO FEB-2009
     Route: 062
  3. BEVACIZUMAB [Suspect]
     Indication: ENDOMETRIAL CANCER
     Dosage: 10 MG/KG DAYS 1 AND 15 (TOTAL DOSE THIS COURSE 1328 MG)
     Route: 042
     Dates: start: 20081203, end: 20090114

REACTIONS (6)
  - BLOOD CREATININE INCREASED [None]
  - DEHYDRATION [None]
  - FATIGUE [None]
  - FEMALE GENITAL TRACT FISTULA [None]
  - MENTAL STATUS CHANGES [None]
  - NAUSEA [None]
